FAERS Safety Report 17323017 (Version 1)
Quarter: 2020Q1

REPORT INFORMATION
  Report Type: Spontaneous
  Country: GB (occurrence: GB)
  Receive Date: 20200127
  Receipt Date: 20200127
  Transmission Date: 20200409
  Serious: Yes (Hospitalization)
  Sender: FDA-Public Use
  Company Number: GB-TEVA-2020-GB-1173861

PATIENT
  Age: 84 Year

DRUGS (6)
  1. NITROFURANTOIN. [Suspect]
     Active Substance: NITROFURANTOIN
     Indication: PYREXIA
     Dosage: 200 MG 1 DAYS
     Route: 048
     Dates: start: 20191125, end: 20191127
  2. SIMVASTATIN. [Concomitant]
     Active Substance: SIMVASTATIN
     Dosage: 40 MILLIGRAM DAILY; IN THE EVENING
     Route: 048
  3. NITROFURANTOIN. [Suspect]
     Active Substance: NITROFURANTOIN
     Dosage: 200 MG 1 DAYS
     Route: 048
     Dates: start: 20191201, end: 20191202
  4. IRBESARTAN. [Concomitant]
     Active Substance: IRBESARTAN
     Dosage: 75 MG 1 DAYS
     Route: 048
  5. ADCAL-D3 [Concomitant]
     Active Substance: CALCIUM CARBONATE\CHOLECALCIFEROL
     Dosage: 2 DOSAGE FORMS 1 DAYS
     Route: 048
  6. GENTAMICIN. [Concomitant]
     Active Substance: GENTAMICIN
     Dosage: 80MG/2ML AMPOULES , 280 MG 1 DAYS
     Route: 041
     Dates: start: 20191128, end: 20191201

REACTIONS (3)
  - Eosinophilia [Unknown]
  - Lung disorder [Unknown]
  - Hypoxia [Recovered/Resolved]

NARRATIVE: CASE EVENT DATE: 20191202
